FAERS Safety Report 22399544 (Version 1)
Quarter: 2023Q2

REPORT INFORMATION
  Report Type: Spontaneous
  Country: US (occurrence: US)
  Receive Date: 20230602
  Receipt Date: 20230602
  Transmission Date: 20230721
  Serious: No
  Sender: FDA-Public Use
  Company Number: US-009507513-2306USA000572

PATIENT
  Age: 60 Year
  Sex: Male

DRUGS (6)
  1. CUBICIN [Suspect]
     Active Substance: DAPTOMYCIN
     Indication: Enterococcal bacteraemia
     Dosage: UNK
  2. CUBICIN [Suspect]
     Active Substance: DAPTOMYCIN
     Indication: Enterococcal infection
  3. CEFTAROLINE [Concomitant]
     Active Substance: CEFTAROLINE
     Indication: Enterococcal bacteraemia
     Dosage: UNK
  4. CEFTAROLINE [Concomitant]
     Active Substance: CEFTAROLINE
     Indication: Enterococcal infection
  5. ISAVUCONAZOLE [Concomitant]
     Active Substance: ISAVUCONAZOLE
     Indication: Enterococcal bacteraemia
     Dosage: UNK
  6. ISAVUCONAZOLE [Concomitant]
     Active Substance: ISAVUCONAZOLE
     Indication: Enterococcal infection

REACTIONS (1)
  - Product use in unapproved indication [Unknown]
